FAERS Safety Report 8400744-0 (Version None)
Quarter: 2012Q2

REPORT INFORMATION
  Report Type: 
  Country: None (occurrence: None)
  Receive Date: 20120531
  Receipt Date: 20120524
  Transmission Date: 20120825
  Serious: Yes (Hospitalization, Other)
  Sender: FDA-Public Use
  Company Number: US-MERCK-1111USA02474

PATIENT
  Age: 71 Year
  Sex: Female
  Weight: 64 kg

DRUGS (17)
  1. HYDROCHLOROTHIAZIDE [Concomitant]
     Route: 065
  2. COUMADIN [Concomitant]
     Indication: ARTERIOSCLEROSIS
     Route: 048
     Dates: start: 19930101
  3. DILTIAZEM HYDROCHLORIDE [Concomitant]
     Indication: HYPERTENSION
     Route: 065
     Dates: start: 19930101
  4. SPIRONOLACTONE [Concomitant]
     Indication: HYPERTENSION
     Route: 065
     Dates: start: 19930101
  5. FOSAMAX [Suspect]
     Route: 048
  6. HEMOCYTE-F [Concomitant]
     Route: 065
  7. POTASSIUM CHLORIDE [Concomitant]
     Route: 048
  8. LOVASTATIN [Concomitant]
     Indication: HYPERCHOLESTEROLAEMIA
     Route: 065
     Dates: start: 19930101
  9. FOSAMAX [Suspect]
     Indication: OSTEOPOROSIS
     Route: 048
     Dates: start: 20060710
  10. FOSAMAX [Suspect]
     Route: 048
  11. DILTIAZEM [Concomitant]
     Indication: HYPERTENSION
     Route: 065
     Dates: start: 19930101
  12. WARFARIN [Concomitant]
     Route: 065
  13. FOSAMAX PLUS D [Suspect]
     Indication: OSTEOPOROSIS
     Route: 048
     Dates: start: 20060401, end: 20080402
  14. CYANOCOBALAMIN [Concomitant]
     Route: 051
  15. NEURONTIN [Concomitant]
     Route: 065
  16. HYDROCODONE [Concomitant]
     Indication: PAIN
     Route: 065
     Dates: start: 19930101
  17. ACETAMINOPHEN AND HYDROCODONE BITARTRATE [Concomitant]
     Route: 065

REACTIONS (34)
  - SPINAL COMPRESSION FRACTURE [None]
  - HYPONATRAEMIA [None]
  - MUSCULOSKELETAL DISORDER [None]
  - GASTRITIS [None]
  - DEEP VEIN THROMBOSIS [None]
  - FOREIGN BODY [None]
  - GAIT DISTURBANCE [None]
  - VULVOVAGINAL MYCOTIC INFECTION [None]
  - RIB FRACTURE [None]
  - OSTEONECROSIS OF JAW [None]
  - CONFUSIONAL STATE [None]
  - DENTAL PULP DISORDER [None]
  - POLLAKIURIA [None]
  - PNEUMONIA [None]
  - BUNDLE BRANCH BLOCK RIGHT [None]
  - FALL [None]
  - HYPEROSMOLAR STATE [None]
  - BLADDER DISORDER [None]
  - DENTAL CARIES [None]
  - GASTROOESOPHAGEAL REFLUX DISEASE [None]
  - WEIGHT DECREASED [None]
  - TOOTH DISORDER [None]
  - SKIN LESION [None]
  - PATELLA FRACTURE [None]
  - CONJUNCTIVITIS [None]
  - CYSTITIS [None]
  - OEDEMA PERIPHERAL [None]
  - SUPRAVENTRICULAR EXTRASYSTOLES [None]
  - CELLULITIS [None]
  - HEMIPARESIS [None]
  - RADICULOPATHY [None]
  - PERNICIOUS ANAEMIA [None]
  - NODULE [None]
  - OSTEOARTHRITIS [None]
